FAERS Safety Report 9405962 (Version 1)
Quarter: 2013Q3

REPORT INFORMATION
  Report Type: Report from Study
  Country: IN (occurrence: IN)
  Receive Date: 20130717
  Receipt Date: 20130717
  Transmission Date: 20140515
  Serious: Yes (Death, Hospitalization)
  Sender: FDA-Public Use
  Company Number: IN-GLAXOSMITHKLINE-B0908278A

PATIENT
  Age: 54 Year
  Sex: Female

DRUGS (1)
  1. SERETIDE ACCUHALER [Suspect]
     Indication: ASTHMA
     Route: 065

REACTIONS (3)
  - Death [Fatal]
  - Gastric infection [Unknown]
  - Multi-organ failure [Unknown]
